FAERS Safety Report 5375912-5 (Version None)
Quarter: 2007Q3

REPORT INFORMATION
  Report Type: 
  Country: None (occurrence: None)
  Receive Date: 20070702
  Receipt Date: 20070621
  Transmission Date: 20080115
  Serious: Yes (Other)
  Sender: FDA-Public Use
  Company Number: JP-JNJFOC-20070605231

PATIENT
  Sex: Female
  Weight: 43 kg

DRUGS (19)
  1. REMICADE [Suspect]
     Dosage: INFUSION ON UNKNOWN DATE
     Route: 042
  2. REMICADE [Suspect]
     Route: 042
  3. REMICADE [Suspect]
     Route: 042
  4. REMICADE [Suspect]
     Route: 042
  5. REMICADE [Suspect]
     Route: 042
  6. REMICADE [Suspect]
     Route: 042
  7. REMICADE [Suspect]
     Route: 042
  8. REMICADE [Suspect]
     Route: 042
  9. REMICADE [Suspect]
     Indication: RHEUMATOID ARTHRITIS
     Route: 042
  10. ISCOTIN [Suspect]
     Indication: ANTIBIOTIC PROPHYLAXIS
     Route: 048
  11. ADRENAL HORMONE PREPARATIONS [Concomitant]
     Indication: RHEUMATOID ARTHRITIS
  12. VOLTAREN [Concomitant]
     Indication: RHEUMATOID ARTHRITIS
     Route: 048
  13. PANTOSIN [Concomitant]
     Indication: RHEUMATOID ARTHRITIS
     Route: 048
  14. KAMAG G [Concomitant]
     Indication: RHEUMATOID ARTHRITIS
     Route: 048
  15. FOLIAMIN [Concomitant]
     Route: 048
  16. RHEUMATREX [Concomitant]
     Indication: RHEUMATOID ARTHRITIS
     Route: 048
  17. PREDNISOLONE [Concomitant]
     Indication: RHEUMATOID ARTHRITIS
     Route: 048
  18. GASTER [Concomitant]
  19. KELNAC [Concomitant]
     Route: 048

REACTIONS (1)
  - MYCOBACTERIUM AVIUM COMPLEX INFECTION [None]
